FAERS Safety Report 6317665-X (Version None)
Quarter: 2009Q3

REPORT INFORMATION
  Report Type: 
  Country: None (occurrence: None)
  Receive Date: 20090821
  Receipt Date: 20090817
  Transmission Date: 20100115
  Serious: Yes (Hospitalization)
  Sender: FDA-Public Use
  Company Number: US-KINGPHARMUSA00001-K200900790

PATIENT
  Age: 74 Year
  Sex: Male

DRUGS (6)
  1. ALTACE [Suspect]
     Indication: HYPERTENSION
     Dosage: 5 MG, QD
     Route: 048
     Dates: start: 20070101, end: 20090530
  2. COUMADIN [Concomitant]
  3. SOTALEX [Concomitant]
  4. ESKIM [Concomitant]
  5. INEGY [Concomitant]
  6. ZYLORIC [Concomitant]

REACTIONS (1)
  - ECZEMA [None]
